FAERS Safety Report 5905891-0 (Version None)
Quarter: 2008Q4

REPORT INFORMATION
  Report Type: 
  Country: None (occurrence: None)
  Receive Date: 20081002
  Receipt Date: 20080925
  Transmission Date: 20090506
  Serious: Yes (Other)
  Sender: FDA-Public Use
  Company Number: US-ASTRAZENECA-2008UW20310

PATIENT
  Age: 55 Year
  Sex: Female

DRUGS (14)
  1. ARIMIDEX [Suspect]
     Indication: BREAST CANCER
     Route: 048
  2. XOPENEX [Concomitant]
  3. SYMBICORT [Concomitant]
     Route: 055
  4. DILANTIN [Concomitant]
  5. DECADRON [Concomitant]
  6. NAPROXEN [Concomitant]
  7. MACROBID [Concomitant]
  8. ASPIRIN [Concomitant]
  9. POTASSIUM CHLORIDE [Concomitant]
  10. RESTORIL [Concomitant]
  11. TICURB [Concomitant]
  12. TAXOTERE [Concomitant]
  13. XOMATA [Concomitant]
  14. NULASTA [Concomitant]

REACTIONS (7)
  - BONE NEOPLASM [None]
  - CEREBROVASCULAR ACCIDENT [None]
  - HOT FLUSH [None]
  - HYPOKINESIA [None]
  - MYOSITIS [None]
  - NEUROPATHY PERIPHERAL [None]
  - PAIN [None]
